FAERS Safety Report 7546955-8 (Version None)
Quarter: 2011Q2

REPORT INFORMATION
  Report Type: 
  Country: None (occurrence: None)
  Receive Date: 20110614
  Receipt Date: 20110613
  Transmission Date: 20111010
  Serious: Yes (Other)
  Sender: FDA-Public Use
  Company Number: JP-B.I. PHARMACEUTICALS,INC./RIDGEFIELD-2011-BP-15098NB

PATIENT
  Age: 80 Year
  Sex: Male

DRUGS (6)
  1. ALLOZYM [Concomitant]
     Route: 065
  2. FAMOTIDINE [Concomitant]
     Route: 065
  3. AMIODARONE HCL [Concomitant]
     Route: 065
  4. PRADAXA [Suspect]
     Route: 065
     Dates: start: 20110501
  5. ASPIRIN [Concomitant]
     Route: 065
  6. BIOFERMIN [Concomitant]
     Route: 065

REACTIONS (1)
  - INTERNATIONAL NORMALISED RATIO INCREASED [None]
